FAERS Safety Report 11802998 (Version 2)
Quarter: 2015Q4

REPORT INFORMATION
  Report Type: Report from Study
  Country: CA (occurrence: CA)
  Receive Date: 20151204
  Receipt Date: 20151204
  Transmission Date: 20160305
  Serious: Yes (Hospitalization)
  Sender: FDA-Public Use
  Company Number: CA-BIOGENIDEC-2015BI159514

PATIENT
  Age: 39 Year
  Sex: Female

DRUGS (1)
  1. TYSABRI [Suspect]
     Active Substance: NATALIZUMAB
     Indication: RELAPSING-REMITTING MULTIPLE SCLEROSIS
     Route: 042
     Dates: start: 20081209

REACTIONS (3)
  - Endometrial ablation [Recovered/Resolved]
  - Skin infection [Not Recovered/Not Resolved]
  - Female sterilisation [Recovered/Resolved]

NARRATIVE: CASE EVENT DATE: 20151123
